FAERS Safety Report 4552151-9 (Version None)
Quarter: 2004Q4

REPORT INFORMATION
  Report Type: 
  Country: None (occurrence: None)
  Receive Date: 20041217
  Receipt Date: 19940820
  Transmission Date: 20050328
  Serious: No
  Sender: FDA-Public Use
  Company Number: 2004-BP-05929BP

PATIENT
  Age: 52 Year
  Sex: Female

DRUGS (14)
  1. SPIRIVA [Suspect]
     Indication: CHRONIC OBSTRUCTIVE AIRWAYS DISEASE
     Dosage: 18 MCG (18 MCG), IH
     Route: 055
     Dates: start: 20040706, end: 20040718
  2. SPIRIVA [Suspect]
  3. ADVAIR (SERETIDE MITE) [Suspect]
     Indication: CHRONIC OBSTRUCTIVE AIRWAYS DISEASE
  4. DUONEB [Suspect]
     Indication: CHRONIC OBSTRUCTIVE AIRWAYS DISEASE
  5. SEREVENT [Suspect]
     Indication: CHRONIC OBSTRUCTIVE AIRWAYS DISEASE
     Dosage: 50 MCG
  6. ALBUTEROL [Suspect]
     Indication: CHRONIC OBSTRUCTIVE AIRWAYS DISEASE
     Dosage: 2.5 MG
  7. SINGULAIR [Suspect]
     Indication: ASTHMA
  8. ZYRTEC [Concomitant]
  9. ACIPHEX [Concomitant]
  10. SUCRALFATE [Concomitant]
  11. PREMARIN [Concomitant]
  12. RHINOCORT AQUA (BUDESONIDE) [Concomitant]
  13. BENICAR [Concomitant]
  14. SUCRALFATE [Concomitant]

REACTIONS (2)
  - BURNING SENSATION [None]
  - CHEST PAIN [None]
